FAERS Safety Report 11857331 (Version 3)
Quarter: 2016Q1

REPORT INFORMATION
  Report Type: Spontaneous
  Country: IT (occurrence: IT)
  Receive Date: 20151221
  Receipt Date: 20160205
  Transmission Date: 20160526
  Serious: Yes (Death, Hospitalization, Other)
  Sender: FDA-Public Use
  Company Number: IT-ABBVIE-15P-083-1522248-00

PATIENT
  Age: 74 Year
  Sex: Female
  Weight: 67 kg

DRUGS (5)
  1. SINTROM [Concomitant]
     Active Substance: ACENOCOUMAROL
     Indication: PRODUCT USED FOR UNKNOWN INDICATION
  2. TAO [Suspect]
     Active Substance: TROLEANDOMYCIN
     Indication: ATRIAL FIBRILLATION
     Route: 065
     Dates: start: 2014, end: 20151130
  3. VIEKIRAX [Suspect]
     Active Substance: OMBITASVIR\PARITAPREVIR\RITONAVIR
     Indication: CHRONIC HEPATITIS C
     Route: 048
     Dates: start: 20151124, end: 20151130
  4. MODERIBA [Suspect]
     Active Substance: RIBAVIRIN
     Indication: CHRONIC HEPATITIS C
     Route: 048
     Dates: start: 20151124, end: 20151130
  5. EXVIERA [Suspect]
     Active Substance: DASABUVIR
     Indication: CHRONIC HEPATITIS C
     Route: 048
     Dates: start: 20151124, end: 20151130

REACTIONS (15)
  - International normalised ratio increased [Unknown]
  - Hyperbilirubinaemia [Unknown]
  - Cholelithiasis [Unknown]
  - Rectal haemorrhage [Unknown]
  - Hypotension [Unknown]
  - Biliary dilatation [Unknown]
  - Portal vein thrombosis [Unknown]
  - Ascites [Unknown]
  - Prothrombin time prolonged [Unknown]
  - Hepatorenal syndrome [Fatal]
  - Laboratory test abnormal [Unknown]
  - Hepatic failure [Unknown]
  - Urine output decreased [Unknown]
  - Epistaxis [Unknown]
  - Haematuria [Unknown]

NARRATIVE: CASE EVENT DATE: 20151201
